FAERS Safety Report 8407593-8 (Version None)
Quarter: 2012Q2

REPORT INFORMATION
  Report Type: 
  Country: None (occurrence: None)
  Receive Date: 20120604
  Receipt Date: 20120529
  Transmission Date: 20120825
  Serious: Yes (Hospitalization)
  Sender: FDA-Public Use
  Company Number: CA-B.I. PHARMACEUTICALS,INC./RIDGEFIELD-2012-CN-01120CN

PATIENT
  Age: 63 Year
  Sex: Female

DRUGS (4)
  1. ANGIOTENSIN RECEPTOR BLOCKER [Concomitant]
  2. STATIN [Concomitant]
  3. BETA BLOCKER [Concomitant]
  4. PRADAXA [Suspect]
     Indication: ATRIAL FIBRILLATION
     Dosage: 300 MG
     Dates: start: 20120410, end: 20120526

REACTIONS (1)
  - CEREBRAL ISCHAEMIA [None]
